FAERS Safety Report 18258822 (Version 1)
Quarter: 2020Q3

REPORT INFORMATION
  Report Type: Spontaneous
  Country: NL (occurrence: NL)
  Receive Date: 20200911
  Receipt Date: 20200911
  Transmission Date: 20201103
  Serious: Yes (Other)
  Sender: FDA-Public Use
  Company Number: NL-NOVOPROD-750484

PATIENT
  Age: 56 Year
  Sex: Male

DRUGS (7)
  1. LEVOMEPROMAZINE MALEATE [Concomitant]
     Active Substance: LEVOMEPROMAZINE MALEATE
     Indication: PRODUCT USED FOR UNKNOWN INDICATION
     Dosage: 0.5 DF, QD (1DD1) (CHRONIC USE)
     Route: 065
  2. LORAZEPAM. [Concomitant]
     Active Substance: LORAZEPAM
     Indication: PRODUCT USED FOR UNKNOWN INDICATION
     Dosage: 1 DF (1 TABLET ) (CHRONIC USE)
     Route: 065
  3. RISPERIDON [Concomitant]
     Active Substance: RISPERIDONE
     Indication: PRODUCT USED FOR UNKNOWN INDICATION
     Dosage: 1 DF, QD (3DD1) (CHRONIC USE)
     Route: 065
  4. MIXTARD 30 PENFILL [Suspect]
     Active Substance: INSULIN HUMAN
     Indication: PRODUCT USED FOR UNKNOWN INDICATION
     Dosage: 1 DF
     Route: 065
  5. GINSENG [GINSENG NOS] [Suspect]
     Active Substance: ASIAN GINSENG
     Indication: MALAISE
     Dosage: 1 DF, QD
     Route: 065
     Dates: start: 20001007, end: 20001023
  6. PERPHENAZINE. [Concomitant]
     Active Substance: PERPHENAZINE
     Indication: PRODUCT USED FOR UNKNOWN INDICATION
     Dosage: 3 DF, QD (3DD1) (CHRONIC USE)
     Route: 065
  7. BIPERIDEN [Concomitant]
     Active Substance: BIPERIDEN
     Indication: PRODUCT USED FOR UNKNOWN INDICATION
     Dosage: 1 DF, QD (2DD1) (CHRONIC USE)
     Route: 065

REACTIONS (3)
  - Drug interaction [Unknown]
  - Hypoglycaemia [Recovering/Resolving]
  - Mania [Recovering/Resolving]

NARRATIVE: CASE EVENT DATE: 20001017
